FAERS Safety Report 17048790 (Version 1)
Quarter: 2019Q4

REPORT INFORMATION
  Report Type: Spontaneous
  Country: US (occurrence: US)
  Receive Date: 20191118
  Receipt Date: 20191118
  Transmission Date: 20200122
  Serious: Yes (Hospitalization)
  Sender: FDA-Public Use
  Company Number: None

PATIENT
  Age: 81 Year
  Sex: Male
  Weight: 70.02 kg

DRUGS (7)
  1. GABAPENTIN. [Concomitant]
     Active Substance: GABAPENTIN
     Dates: start: 20191007
  2. LOSARTAN. [Concomitant]
     Active Substance: LOSARTAN
     Dates: start: 20181203
  3. APIXABAN [Suspect]
     Active Substance: APIXABAN
     Indication: ATRIAL FIBRILLATION
     Dates: start: 20190919, end: 20191018
  4. TAMSULOSIN [Concomitant]
     Active Substance: TAMSULOSIN
     Dates: start: 20180927
  5. ATORVASTATIN [Concomitant]
     Active Substance: ATORVASTATIN
     Dates: start: 20181213
  6. MODAFINIL. [Concomitant]
     Active Substance: MODAFINIL
     Dates: start: 20191003
  7. MEMANTINE. [Concomitant]
     Active Substance: MEMANTINE
     Dates: start: 20190604

REACTIONS (2)
  - Haemoglobin decreased [None]
  - Haematochezia [None]

NARRATIVE: CASE EVENT DATE: 20191026
